FAERS Safety Report 25076351 (Version 2)
Quarter: 2025Q2

REPORT INFORMATION
  Report Type: Spontaneous
  Country: CN (occurrence: CN)
  Receive Date: 20250313
  Receipt Date: 20250428
  Transmission Date: 20250717
  Serious: Yes (Hospitalization, Disabling, Other)
  Sender: CALLIDITAS THERAPEUTICS AB
  Company Number: CN-EVEREST-20250100014

PATIENT
  Age: 59 Year
  Sex: Male

DRUGS (2)
  1. BUDESONIDE [Suspect]
     Active Substance: BUDESONIDE
     Indication: IgA nephropathy
     Route: 048
     Dates: start: 20240901
  2. CALCITRIOL [Concomitant]
     Active Substance: CALCITRIOL
     Indication: IgA nephropathy
     Dosage: 1 DOSAGE FORM, QD
     Route: 048
     Dates: start: 20240901

REACTIONS (6)
  - Renal necrosis [Unknown]
  - Transitional cell carcinoma [Unknown]
  - Blood glucose increased [Recovered/Resolved]
  - Glomerular filtration rate decreased [Unknown]
  - Blood creatinine increased [Unknown]
  - Drug ineffective [Unknown]

NARRATIVE: CASE EVENT DATE: 20240901
